FAERS Safety Report 16238001 (Version 1)
Quarter: 2019Q2

REPORT INFORMATION
  Report Type: Spontaneous
  Country: US (occurrence: US)
  Receive Date: 20190425
  Receipt Date: 20190425
  Transmission Date: 20190711
  Serious: No
  Sender: FDA-Public Use
  Company Number: US-PFIZER INC-2019167234

PATIENT
  Age: 71 Year
  Sex: Female
  Weight: 77.11 kg

DRUGS (4)
  1. SKELAXIN [Suspect]
     Active Substance: METAXALONE
     Indication: MUSCLE SPASMS
     Dosage: 200 MG, UNK
  2. SKELAXIN [Suspect]
     Active Substance: METAXALONE
     Dosage: 800 MG, 2X/DAY
     Route: 048
  3. SKELAXIN [Suspect]
     Active Substance: METAXALONE
     Dosage: 400 MG, UNK
  4. SKELAXIN [Suspect]
     Active Substance: METAXALONE
     Dosage: 800 MG, 3X/DAY
     Route: 048

REACTIONS (3)
  - Underdose [Unknown]
  - Intentional product misuse [Unknown]
  - Back disorder [Unknown]
